FAERS Safety Report 4926786-5 (Version None)
Quarter: 2006Q1

REPORT INFORMATION
  Report Type: 
  Country: None (occurrence: None)
  Receive Date: 20060228
  Receipt Date: 20050615
  Transmission Date: 20060701
  Serious: No
  Sender: FDA-Public Use
  Company Number: US-GLAXOSMITHKLINE-A0562781A

PATIENT
  Age: 53 Year
  Sex: Female

DRUGS (2)
  1. LAMICTAL [Suspect]
     Indication: BIPOLAR DISORDER
     Dosage: 100MG PER DAY
     Route: 048
     Dates: start: 20050301, end: 20050501
  2. NO CONCURRENT MEDICATION [Concomitant]

REACTIONS (3)
  - AMNESIA [None]
  - ANXIETY [None]
  - DIARRHOEA [None]
